FAERS Safety Report 5148160-1 (Version None)
Quarter: 2006Q4

REPORT INFORMATION
  Report Type: 
  Country: None (occurrence: None)
  Receive Date: 20061106
  Receipt Date: 20061025
  Transmission Date: 20070319
  Serious: Yes (Hospitalization, Other)
  Sender: FDA-Public Use
  Company Number: GXKR2006JP06867

PATIENT
  Age: 69 Year
  Sex: Male

DRUGS (1)
  1. RIFAMPICIN [Suspect]

REACTIONS (3)
  - HYPOTHYROIDISM [None]
  - MALAISE [None]
  - RASH [None]
